FAERS Safety Report 11836421 (Version 1)
Quarter: 2015Q4

REPORT INFORMATION
  Report Type: Spontaneous
  Country: FR (occurrence: FR)
  Receive Date: 20151215
  Receipt Date: 20151215
  Transmission Date: 20160305
  Serious: Yes (Hospitalization, Other)
  Sender: FDA-Public Use
  Company Number: FR-BAXTER-2015BAX066406

PATIENT
  Sex: Female

DRUGS (9)
  1. APROVEL [Concomitant]
     Active Substance: IRBESARTAN
     Indication: PRODUCT USED FOR UNKNOWN INDICATION
     Dosage: IN THE EVENING, LONG TERM THERAPY
     Route: 065
  2. ENDOXAN 1000 MG, POUDRE POUR SOLUTION INJECTABLE [Suspect]
     Active Substance: CYCLOPHOSPHAMIDE
     Indication: PRODUCT USED FOR UNKNOWN INDICATION
     Dosage: CYCLE 1
     Route: 042
     Dates: start: 20100106
  3. ENDOXAN 1000 MG, POUDRE POUR SOLUTION INJECTABLE [Suspect]
     Active Substance: CYCLOPHOSPHAMIDE
     Dosage: FOLLOWING 3 CYCLES (AT A DOSAGE OF 80%)
     Route: 042
     Dates: end: 20100407
  4. DOCETAXEL. [Suspect]
     Active Substance: DOCETAXEL
     Dosage: FOLLOWING 3 CYCLES (AT A DOSAGE OF 80%)
     Route: 042
     Dates: end: 20100407
  5. ALDACTAZINE [Concomitant]
     Active Substance: ALTHIAZIDE\SPIRONOLACTONE
     Indication: PRODUCT USED FOR UNKNOWN INDICATION
     Dosage: A HALF UNIT, LONG TERM THERAPY
     Route: 065
  6. DOCETAXEL. [Suspect]
     Active Substance: DOCETAXEL
     Indication: PRODUCT USED FOR UNKNOWN INDICATION
     Dosage: 4 CYCLES
     Route: 042
     Dates: start: 20100106
  7. CRESTOR [Concomitant]
     Active Substance: ROSUVASTATIN CALCIUM
     Indication: PRODUCT USED FOR UNKNOWN INDICATION
     Dosage: AT NOON, LONG TERM THERAPY
     Route: 065
  8. INIPOMP [Concomitant]
     Active Substance: PANTOPRAZOLE SODIUM
     Indication: PRODUCT USED FOR UNKNOWN INDICATION
     Dosage: AT NOON, LONG TERM THERAPY
     Route: 065
  9. VERATRAN [Concomitant]
     Active Substance: CLOTIAZEPAM
     Indication: PRODUCT USED FOR UNKNOWN INDICATION
     Dosage: IN THE EVENING, LONG TERM THERAPY
     Route: 065

REACTIONS (3)
  - Histiocytosis haematophagic [Not Recovered/Not Resolved]
  - Hepatosplenic T-cell lymphoma [Not Recovered/Not Resolved]
  - Agranulocytosis [Unknown]

NARRATIVE: CASE EVENT DATE: 2010
